FAERS Safety Report 8179681-5 (Version None)
Quarter: 2012Q1

REPORT INFORMATION
  Report Type: 
  Country: None (occurrence: None)
  Receive Date: 20120229
  Receipt Date: 20120229
  Transmission Date: 20120608
  Serious: Yes (Other)
  Sender: FDA-Public Use
  Company Number: None

PATIENT
  Sex: Female
  Weight: 27 kg

DRUGS (1)
  1. ORAJEL KIDS MY WAY SODIUM FLUROIDE 0.24% CHURCH + DWIGHT CO., INC. [Suspect]
     Indication: DENTAL DISORDER PROPHYLAXIS
     Dosage: PEA SIZE TWICE DENTAL
     Route: 004
     Dates: start: 20120107, end: 20120108

REACTIONS (5)
  - REFUSAL OF TREATMENT BY PATIENT [None]
  - HYPOAESTHESIA [None]
  - HYPOAESTHESIA ORAL [None]
  - PHARYNGEAL HYPOAESTHESIA [None]
  - DYSGEUSIA [None]
